FAERS Safety Report 5656897-0 (Version None)
Quarter: 2008Q1

REPORT INFORMATION
  Report Type: 
  Country: None (occurrence: None)
  Receive Date: 20080305
  Receipt Date: 20080305
  Transmission Date: 20080703
  Serious: Yes (Death, Life-Threatening, Hospitalization)
  Sender: FDA-Public Use
  Company Number: None

PATIENT
  Sex: Male
  Weight: 82 kg

DRUGS (33)
  1. DECADRON [Suspect]
     Indication: AMYLOIDOSIS
     Dosage: 20MG PO (TWICE/WK)
     Route: 048
     Dates: start: 20071003, end: 20080208
  2. MELPHALAN [Concomitant]
  3. BORTEZOMIB [Concomitant]
  4. PROTONIX [Concomitant]
  5. ZOCOR [Concomitant]
  6. PREVACID [Concomitant]
  7. CINGULAIR [Concomitant]
  8. CARDIZEM [Concomitant]
  9. GLUCOSAMINE [Concomitant]
  10. KETORALEC [Concomitant]
  11. VICODIN [Concomitant]
  12. ADVAIR DISKUS 100/50 [Concomitant]
  13. SPIRVA [Concomitant]
  14. MORPHINE [Concomitant]
  15. MULTI-VITAMIN [Concomitant]
  16. VITAMIN B SUPPLEMENT [Concomitant]
  17. AMITRIPTYLINE HCL [Concomitant]
  18. PERIACTIN [Concomitant]
  19. ACYLOVIR [Concomitant]
  20. WARFARIN SODIUM [Concomitant]
  21. LASIX [Concomitant]
  22. POTASSIUM SUPPLEMENT [Concomitant]
  23. TYLENOL (CAPLET) [Concomitant]
  24. ALBUTEROL [Concomitant]
  25. DULCOLAX [Concomitant]
  26. SENNOSIDES [Concomitant]
  27. READY FIBER [Concomitant]
  28. POTASSIUM CHLORIDE [Concomitant]
  29. AUGMENTIN '125' [Concomitant]
  30. MOTRIN [Concomitant]
  31. GREEN TEA EXTRACT [Concomitant]
  32. FLUDROCORTISONE ACETATE [Concomitant]
  33. MS CONTIN [Concomitant]

REACTIONS (7)
  - CEREBRAL INFARCTION [None]
  - CEREBROVASCULAR ACCIDENT [None]
  - HYPOTENSION [None]
  - MENTAL STATUS CHANGES [None]
  - OEDEMA [None]
  - SEPSIS [None]
  - SUPRAVENTRICULAR TACHYCARDIA [None]
